FAERS Safety Report 9081786 (Version 1)
Quarter: 2013Q1

REPORT INFORMATION
  Report Type: Spontaneous
  Country: ZA (occurrence: ZA)
  Receive Date: 20130131
  Receipt Date: 20130131
  Transmission Date: 20140127
  Serious: Yes (Hospitalization, Other)
  Sender: FDA-Public Use
  Company Number: ZA-ABBOTT-13P-143-1042940-00

PATIENT
  Age: 61 Year
  Sex: Male

DRUGS (5)
  1. EPILIM [Suspect]
     Indication: CONVULSION
     Route: 042
     Dates: start: 20121227
  2. EPILIM [Suspect]
     Dosage: EVERY 8 HOURS
     Route: 042
  3. EPILIM [Suspect]
     Route: 042
  4. PHENERGAN [Concomitant]
     Indication: PRODUCT USED FOR UNKNOWN INDICATION
     Dates: start: 20121227
  5. ATERAX [Concomitant]
     Indication: PRODUCT USED FOR UNKNOWN INDICATION
     Dates: start: 20121227

REACTIONS (2)
  - Drug level decreased [Unknown]
  - Convulsion [Not Recovered/Not Resolved]
